FAERS Safety Report 19035026 (Version 1)
Quarter: 2021Q1

REPORT INFORMATION
  Report Type: Other
  Country: US (occurrence: US)
  Receive Date: 20210320
  Receipt Date: 20210320
  Transmission Date: 20210420
  Serious: Yes (Hospitalization, Other)
  Sender: FDA-Public Use
  Company Number: US-ACORDA-ACO_167363_2020

PATIENT
  Sex: Male

DRUGS (1)
  1. INBRIJA [Suspect]
     Active Substance: LEVODOPA
     Indication: PARKINSON^S DISEASE
     Dosage: 84 MILLIGRAM, PRN (NOT TO EXCEED 5 DOSES IN 1 DAY)
     Route: 065
     Dates: start: 20201216

REACTIONS (4)
  - Cerebral haemorrhage [Unknown]
  - Head injury [Unknown]
  - Dizziness [Unknown]
  - Fall [Unknown]
